FAERS Safety Report 8910823 (Version 1)
Quarter: 2012Q4

REPORT INFORMATION
  Report Type: 
  Country: JP (occurrence: JP)
  Receive Date: 20121116
  Receipt Date: 20121116
  Transmission Date: 20130627
  Serious: Yes (Death, Other)
  Sender: FDA-Public Use
  Company Number: JP-BAYER-2012-118572

PATIENT
  Age: 58 Year
  Sex: Female

DRUGS (2)
  1. MAGNEVIST [Suspect]
     Indication: MRI BRAIN
     Dosage: 0.2 ml/kg, ONCE
     Route: 042
     Dates: start: 20121105, end: 20121105
  2. MAGNEVIST [Suspect]
     Indication: BRAIN METASTASES

REACTIONS (6)
  - Oesophageal ulcer haemorrhage [Fatal]
  - Haematemesis [Fatal]
  - Loss of consciousness [Recovered/Resolved]
  - Blood pressure decreased [Recovered/Resolved]
  - Pulse absent [Recovered/Resolved]
  - Feeling abnormal [Recovered/Resolved]
